FAERS Safety Report 8837197 (Version 1)
Quarter: 2012Q4

REPORT INFORMATION
  Report Type: 
  Country: US (occurrence: US)
  Receive Date: 20121012
  Receipt Date: 20121012
  Transmission Date: 20130627
  Serious: Yes (Death)
  Sender: FDA-Public Use
  Company Number: PHEH2012US019862

PATIENT
  Sex: Male

DRUGS (9)
  1. SANDOSTATIN LAR DEPOT [Suspect]
  2. PROGRAF [Concomitant]
  3. LEVETIRACETAM [Concomitant]
  4. PROCHLORPERAZINE [Concomitant]
  5. DEXAMETHASONE [Concomitant]
  6. CEPHALEXIN [Concomitant]
  7. MIRTAZAPINE [Concomitant]
  8. AMOXICILLIN [Concomitant]
  9. INSULIN [Concomitant]

REACTIONS (2)
  - Death [Fatal]
  - Hepatic cancer [Unknown]
